FAERS Safety Report 8767348 (Version 1)
Quarter: 2012Q4

REPORT INFORMATION
  Report Type: 
  Country: GB (occurrence: GB)
  Receive Date: 20120904
  Receipt Date: 20120904
  Transmission Date: 20130627
  Serious: Yes (Hospitalization, Other)
  Sender: FDA-Public Use
  Company Number: GB-B.I. PHARMACEUTICALS,INC./RIDGEFIELD-2012-UK-01143UK

PATIENT
  Age: 29 Year
  Sex: Male

DRUGS (4)
  1. PRADAXA [Suspect]
     Indication: EMBOLISM
     Dosage: 150 mg
  2. BACLOFEN [Concomitant]
  3. CITALOPRAM [Concomitant]
  4. CODEINE PHOSPHATE [Concomitant]

REACTIONS (9)
  - Pancreatitis acute [Not Recovered/Not Resolved]
  - Abdominal rigidity [Unknown]
  - Abdominal pain [Not Recovered/Not Resolved]
  - Abdominal tenderness [Unknown]
  - Tachycardia [Unknown]
  - Alanine aminotransferase increased [Not Recovered/Not Resolved]
  - Amylase increased [Not Recovered/Not Resolved]
  - C-reactive protein increased [Not Recovered/Not Resolved]
  - Pyrexia [Unknown]
